FAERS Safety Report 18801413 (Version 1)
Quarter: 2021Q1

REPORT INFORMATION
  Report Type: Spontaneous
  Country: US (occurrence: US)
  Receive Date: 20210128
  Receipt Date: 20210128
  Transmission Date: 20210419
  Serious: No
  Sender: FDA-Public Use
  Company Number: US-ASTRAZENECA-2020SF76215

PATIENT
  Age: 861 Month
  Sex: Female
  Weight: 85.3 kg

DRUGS (4)
  1. TYLENOL [Concomitant]
     Active Substance: ACETAMINOPHEN
     Dosage: AS REQUIRED
  2. ALLERGY SHOTS [Concomitant]
     Active Substance: UNSPECIFIED INGREDIENT
  3. SYMBICORT [Suspect]
     Active Substance: BUDESONIDE\FORMOTEROL FUMARATE DIHYDRATE
     Indication: ASTHMA
     Dosage: 160/4.5 MCG TWO PUFFS, TWO TIMES A DAY
     Route: 055
  4. ASPIRIN. [Concomitant]
     Active Substance: ASPIRIN
     Dosage: AS REQUIRED

REACTIONS (11)
  - Asthma [Unknown]
  - Dry age-related macular degeneration [Not Recovered/Not Resolved]
  - Sinus headache [Unknown]
  - Pyrexia [Unknown]
  - Vision blurred [Recovered/Resolved]
  - Drug ineffective [Unknown]
  - Suspected COVID-19 [Unknown]
  - Dyspnoea [Unknown]
  - Asthma-chronic obstructive pulmonary disease overlap syndrome [Not Recovered/Not Resolved]
  - Confusional state [Unknown]
  - Cough [Unknown]

NARRATIVE: CASE EVENT DATE: 202001
